FAERS Safety Report 5370998-6 (Version None)
Quarter: 2007Q2

REPORT INFORMATION
  Report Type: 
  Country: None (occurrence: None)
  Receive Date: 20070626
  Receipt Date: 20070614
  Transmission Date: 20071010
  Serious: Yes (Other)
  Sender: FDA-Public Use
  Company Number: CA-ELI_LILLY_AND_COMPANY-CA200705004397

PATIENT
  Age: 78 Year
  Sex: Male

DRUGS (6)
  1. FORTEO [Suspect]
     Indication: OSTEOPOROSIS
     Dosage: 20 UG, DAILY (1/D)
     Route: 058
     Dates: start: 20070110
  2. COUMADIN [Concomitant]
  3. ACETYLSALICYLIC ACID SRT [Concomitant]
     Dosage: 81 MG, UNK
  4. CALCIUM CHLORIDE [Concomitant]
  5. VITAMIN D [Concomitant]
  6. MULTI-VITAMIN [Concomitant]

REACTIONS (8)
  - ASTHENIA [None]
  - BALANCE DISORDER [None]
  - GENERAL PHYSICAL HEALTH DETERIORATION [None]
  - LOSS OF CONSCIOUSNESS [None]
  - NAUSEA [None]
  - PSYCHOMOTOR SKILLS IMPAIRED [None]
  - SPINAL FUSION ACQUIRED [None]
  - SYNCOPE [None]
